FAERS Safety Report 9857617 (Version 2)
Quarter: 2014Q1

REPORT INFORMATION
  Report Type: Spontaneous
  Country: US (occurrence: US)
  Receive Date: 20140131
  Receipt Date: 20140213
  Transmission Date: 20141002
  Serious: Yes (Hospitalization)
  Sender: FDA-Public Use
  Company Number: US-BIOGENIDEC-2014BI008305

PATIENT
  Age: 60 Year
  Sex: Female

DRUGS (2)
  1. AVONEX [Suspect]
     Indication: MULTIPLE SCLEROSIS
     Route: 030
     Dates: start: 20140114
  2. AVONEX [Suspect]
     Indication: MULTIPLE SCLEROSIS
     Route: 030
     Dates: start: 20140119

REACTIONS (7)
  - Hallucination [Unknown]
  - Eye swelling [Unknown]
  - Coordination abnormal [Not Recovered/Not Resolved]
  - Convulsion [Recovered/Resolved]
  - Hyperhidrosis [Unknown]
  - Delusion [Not Recovered/Not Resolved]
  - Overdose [Unknown]
